FAERS Safety Report 8758970 (Version 1)
Quarter: 2012Q4

REPORT INFORMATION
  Report Type: 
  Country: JP (occurrence: JP)
  Receive Date: 20120829
  Receipt Date: 20120829
  Transmission Date: 20130627
  Serious: Yes (Other)
  Sender: FDA-Public Use
  Company Number: JP-009507513-2012SP024187

PATIENT

DRUGS (17)
  1. PEGINTERFERON ALFA-2B [Suspect]
     Indication: HEPATITIS C
     Dosage: 1.5 microgram per kilogram, QW
     Route: 058
     Dates: start: 20120214, end: 20120227
  2. PEGINTERFERON ALFA-2B [Suspect]
     Dosage: 1.2 microgram per kilogram, QW
     Route: 058
     Dates: start: 20120308, end: 20120726
  3. REBETOL [Suspect]
     Indication: HEPATITIS C
     Dosage: 600 mg, QD
     Route: 048
     Dates: start: 20120214, end: 20120219
  4. REBETOL [Suspect]
     Dosage: 400 mg, QD
     Route: 048
     Dates: start: 20120220, end: 20120307
  5. REBETOL [Suspect]
     Dosage: 200 mg, QD
     Route: 048
     Dates: start: 20120308, end: 20120321
  6. REBETOL [Suspect]
     Dosage: 200 mg, qd
     Route: 048
     Dates: start: 20120531, end: 20120604
  7. REBETOL [Suspect]
     Dosage: 400 mg, qd
     Route: 048
     Dates: start: 20120605, end: 20120627
  8. REBETOL [Suspect]
     Dosage: 600 mg, qd
     Route: 048
     Dates: start: 20120628, end: 20120726
  9. TELAVIC [Suspect]
     Indication: HEPATITIS C
     Dosage: 1500 mg, QD
     Route: 048
     Dates: start: 20120214
  10. CLARITIN REDITABS [Concomitant]
     Indication: PROPHYLAXIS
     Dosage: 10 mg, QD
     Route: 048
  11. LIVALO [Concomitant]
     Indication: HYPERLIPIDAEMIA
     Dosage: FORMULATION-POR
     Route: 048
  12. EPADEL [Concomitant]
     Indication: HYPERLIPIDAEMIA
     Dosage: FORMULATION-POR
     Route: 048
  13. SODIUM FERROUS CITRATE [Concomitant]
     Indication: IRON DEFICIENCY ANAEMIA
     Dosage: FORMULATION-POR
     Route: 048
  14. LANSOPRAZOLE [Concomitant]
     Indication: GASTROOESOPHAGEAL REFLUX DISEASE
     Dosage: DRUG FORMULATION-POR, LASOPRAN OD
     Route: 048
  15. LASIX (FUROSEMIDE) [Concomitant]
     Indication: OEDEMA
     Dosage: FORMULATION-POR
     Route: 048
  16. MAGLAX (MAGNESIUM OXIDE) [Concomitant]
     Indication: CONSTIPATION
     Dosage: FORMULATION-POR
     Route: 048
  17. MK-0805 [Concomitant]
     Indication: HYPERTENSION
     Dosage: FORMULATION-POR
     Route: 048

REACTIONS (1)
  - Anaemia [Not Recovered/Not Resolved]
